FAERS Safety Report 13391920 (Version 2)
Quarter: 2017Q2

REPORT INFORMATION
  Report Type: Spontaneous
  Country: CO (occurrence: CO)
  Receive Date: 20170331
  Receipt Date: 20170421
  Transmission Date: 20170830
  Serious: Yes (Death, Other)
  Sender: FDA-Public Use
  Company Number: CO-BIOMARINAP-CO-2017-113449

PATIENT
  Age: 31 Year
  Sex: Female
  Weight: 38 kg

DRUGS (1)
  1. VIMIZIM [Suspect]
     Active Substance: ELOSULFASE ALFA
     Indication: MUCOPOLYSACCHARIDOSIS IV
     Dosage: 2 MG/KG, UNK
     Route: 042
     Dates: end: 20170125

REACTIONS (3)
  - Pneumonia [Fatal]
  - Disease progression [Unknown]
  - Restrictive pulmonary disease [Unknown]
